FAERS Safety Report 6309086-0 (Version None)
Quarter: 2009Q3

REPORT INFORMATION
  Report Type: 
  Country: None (occurrence: None)
  Receive Date: 20090814
  Receipt Date: 20070518
  Transmission Date: 20100115
  Serious: Yes (Other)
  Sender: FDA-Public Use
  Company Number: US-ASTRAZENECA-2006UW11413

PATIENT
  Age: 44 Year
  Sex: Female
  Weight: 75.7 kg

DRUGS (20)
  1. SEROQUEL [Suspect]
     Indication: HALLUCINATION, AUDITORY
     Dosage: 50 MG TO 300 MG
     Route: 048
     Dates: start: 20011130, end: 20060101
  2. SEROQUEL [Suspect]
     Indication: SLEEP DISORDER
     Dosage: 50 MG TO 300 MG
     Route: 048
     Dates: start: 20011130, end: 20060101
  3. SEROQUEL [Suspect]
     Dosage: STRENGTH 25 MG, 100MG. DOSE 200MG.
     Route: 048
     Dates: start: 20030217
  4. SEROQUEL [Suspect]
     Dosage: STRENGTH 25 MG, 100MG. DOSE 200MG.
     Route: 048
     Dates: start: 20030217
  5. TYLENOL (CAPLET) [Concomitant]
     Indication: PAIN
     Dosage: ONE TO TWO TABLETS EVERY FOUR HOURS AS REQUIRED
     Route: 048
  6. DILAUDID [Concomitant]
     Indication: CHEST PAIN
     Dosage: DOSE 0.5MG TO 2 MG EVERY 3 HOURS AS REQUIRED
     Route: 042
  7. RESTORIL [Concomitant]
     Indication: SLEEP DISORDER
     Dosage: DOSE 15 MG TO 30 MG AT NIGHT AS REQUIRED
  8. XANAX [Concomitant]
     Indication: ANXIETY
     Dosage: DOSE 0.25 MG TO 1 MG EVERY 4 HOURS AS REQUIRED
  9. PHENERGAN [Concomitant]
     Indication: NAUSEA
     Dosage: DOSE EVERY 4 HOUR AS REQUIRED
  10. PHENERGAN [Concomitant]
     Indication: VOMITING
     Dosage: DOSE EVERY 4 HOUR AS REQUIRED
  11. LOMOTIL [Concomitant]
     Indication: DIARRHOEA
     Dosage: DOSE 2 TABLETS AS REQUIRED EVERY 2 HOURS. LIMIT TO 8 TABS/24 HOURS.
     Route: 048
  12. ASPIRIN [Concomitant]
     Route: 048
  13. ZOCOR [Concomitant]
     Indication: HYPERLIPIDAEMIA
     Dosage: STRENGTH 20MG, DOSE 20MG TO 40 MG.
     Route: 048
  14. TOPROL-XL [Concomitant]
     Route: 048
  15. ALTACE [Concomitant]
     Dosage: DOSE 2.5MG TO 7.5 MG DAILY
     Route: 048
  16. PLAVIX [Concomitant]
  17. ZOLOFT [Concomitant]
     Dosage: DOSE 50MG TO 100 MG DAILY
     Route: 048
  18. KLONOPIN [Concomitant]
  19. REGLAN [Concomitant]
     Dosage: DOSE EVERY 4 HOURS AS REQUIRED OVER 2 MINUTES
     Route: 042
  20. NITROGLYCERIN [Concomitant]
     Dosage: AS REQUIRED

REACTIONS (7)
  - BLOOD CHOLESTEROL INCREASED [None]
  - BLOOD TRIGLYCERIDES INCREASED [None]
  - DIABETES MELLITUS [None]
  - ESCHERICHIA BACTERAEMIA [None]
  - FLUID RETENTION [None]
  - JOINT SWELLING [None]
  - MYOCARDIAL INFARCTION [None]
